FAERS Safety Report 4697978-8 (Version None)
Quarter: 2005Q2

REPORT INFORMATION
  Report Type: 
  Country: None (occurrence: None)
  Receive Date: 20050622
  Receipt Date: 20050622
  Transmission Date: 20051028
  Serious: Yes (Hospitalization, Disabling, Other)
  Sender: FDA-Public Use
  Company Number: None

PATIENT
  Age: 78 Year
  Sex: Male
  Weight: 97.5234 kg

DRUGS (1)
  1. GENTAMICIN [Suspect]
     Indication: LUNG INFECTION
     Dosage: 3 TIMES PER DAY INTRAVENOU
     Route: 042
     Dates: start: 20050515, end: 20050529

REACTIONS (1)
  - VESTIBULAR DISORDER [None]
